FAERS Safety Report 20852679 (Version 2)
Quarter: 2022Q3

REPORT INFORMATION
  Report Type: Report from Study
  Country: KR (occurrence: KR)
  Receive Date: 20220520
  Receipt Date: 20220905
  Transmission Date: 20221026
  Serious: Yes (Hospitalization, Other)
  Sender: FDA-Public Use
  Company Number: KR-TAKEDA-2022TUS032758

PATIENT
  Age: 40 Year
  Sex: Male
  Weight: 70 kg

DRUGS (27)
  1. VEDOLIZUMAB [Suspect]
     Active Substance: VEDOLIZUMAB
     Indication: Colitis ulcerative
     Dosage: 300 MILLIGRAM
     Route: 042
     Dates: start: 20210823, end: 20210823
  2. VEDOLIZUMAB [Suspect]
     Active Substance: VEDOLIZUMAB
     Dosage: 300 MILLIGRAM
     Route: 042
     Dates: start: 20210906, end: 20210906
  3. VEDOLIZUMAB [Suspect]
     Active Substance: VEDOLIZUMAB
     Dosage: 300 MILLIGRAM
     Route: 042
     Dates: start: 20211004, end: 20211004
  4. VEDOLIZUMAB [Suspect]
     Active Substance: VEDOLIZUMAB
     Dosage: 300 MILLIGRAM
     Route: 042
     Dates: start: 20211129, end: 20211129
  5. VEDOLIZUMAB [Suspect]
     Active Substance: VEDOLIZUMAB
     Dosage: 300 MILLIGRAM
     Route: 042
     Dates: start: 20220124, end: 20220124
  6. VEDOLIZUMAB [Suspect]
     Active Substance: VEDOLIZUMAB
     Dosage: 300 MILLIGRAM
     Route: 042
     Dates: start: 20220321
  7. FEROBA YOU [Concomitant]
     Indication: Anaemia
     Dosage: 512 MILLIGRAM, QD
     Route: 048
     Dates: start: 20210222
  8. Venoferrum [Concomitant]
     Indication: Anaemia
     Dosage: 100 MILLIGRAM, PRN
     Route: 042
     Dates: start: 20220124
  9. AMINO ACIDS\DEXTROSE\ELECTROLYTES NOS\SOYBEAN OIL\VITAMINS [Concomitant]
     Active Substance: AMINO ACIDS\DEXTROSE\ELECTROLYTES NOS\SOYBEAN OIL\VITAMINS
     Indication: Adverse event
     Dosage: 1085 MILLIGRAM, QD
     Route: 042
     Dates: start: 20220404, end: 20220405
  10. CORTISOL [Concomitant]
     Active Substance: HYDROCORTISONE
     Indication: Premedication
     Dosage: 100 MILLIGRAM, MONTHLY
     Route: 042
     Dates: start: 20220405
  11. CORTISOL [Concomitant]
     Active Substance: HYDROCORTISONE
     Dosage: 70 MILLIGRAM, TID
     Route: 042
     Dates: start: 20220405, end: 20220410
  12. ERDOSTEINE [Concomitant]
     Active Substance: ERDOSTEINE
     Indication: Adverse event
     Dosage: 300 MILLIGRAM, TID
     Route: 048
     Dates: start: 20220405
  13. ESCHERICHIA COLI [Concomitant]
     Active Substance: ESCHERICHIA COLI
     Dosage: 28 MILLIGRAM, QD
     Route: 048
     Dates: start: 20210222
  14. PREDNISOLONE [Concomitant]
     Active Substance: PREDNISOLONE
     Dosage: 30 MILLIGRAM, QD
     Route: 048
     Dates: start: 20210712, end: 20210718
  15. PREDNISOLONE [Concomitant]
     Active Substance: PREDNISOLONE
     Dosage: 27.5 MILLIGRAM, QD
     Route: 048
     Dates: start: 20210719, end: 20210725
  16. PREDNISOLONE [Concomitant]
     Active Substance: PREDNISOLONE
     Dosage: 25 MILLIGRAM, QD
     Route: 048
     Dates: start: 20210726, end: 20210801
  17. PREDNISOLONE [Concomitant]
     Active Substance: PREDNISOLONE
     Dosage: 22.5 MILLIGRAM, QD
     Route: 048
     Dates: start: 20210802, end: 20210808
  18. PREDNISOLONE [Concomitant]
     Active Substance: PREDNISOLONE
     Dosage: 20 MILLIGRAM, QD
     Route: 048
     Dates: start: 20210809, end: 20210815
  19. PREDNISOLONE [Concomitant]
     Active Substance: PREDNISOLONE
     Dosage: 17.5 MILLIGRAM, QD
     Route: 048
     Dates: start: 20210816, end: 20210822
  20. PREDNISOLONE [Concomitant]
     Active Substance: PREDNISOLONE
     Dosage: 15 MILLIGRAM, QD
     Route: 048
     Dates: start: 20210823, end: 20210829
  21. PREDNISOLONE [Concomitant]
     Active Substance: PREDNISOLONE
     Dosage: 125 MILLIGRAM, QD
     Route: 048
     Dates: start: 20210830, end: 20210905
  22. PREDNISOLONE [Concomitant]
     Active Substance: PREDNISOLONE
     Dosage: 10 MILLIGRAM, QD
     Route: 048
     Dates: start: 20210906, end: 20210912
  23. PREDNISOLONE [Concomitant]
     Active Substance: PREDNISOLONE
     Dosage: 7.5 MILLIGRAM, QD
     Route: 048
     Dates: start: 20210913, end: 20210919
  24. PREDNISOLONE [Concomitant]
     Active Substance: PREDNISOLONE
     Dosage: 5 MILLIGRAM, QD
     Route: 048
     Dates: start: 20210920, end: 20210926
  25. PREDNISOLONE [Concomitant]
     Active Substance: PREDNISOLONE
     Dosage: 25 MILLIGRAM, QD
     Route: 048
     Dates: start: 20210927, end: 20211008
  26. PREDNISOLONE [Concomitant]
     Active Substance: PREDNISOLONE
     Dosage: 15 MILLIGRAM, TID
     Route: 048
     Dates: start: 20220411
  27. REMICADE [Concomitant]
     Active Substance: INFLIXIMAB
     Dosage: 400 MILLIGRAM, MONTHLY
     Route: 042
     Dates: start: 20220405

REACTIONS (1)
  - Colitis ulcerative [Recovered/Resolved]

NARRATIVE: CASE EVENT DATE: 20220404
